FAERS Safety Report 9987446 (Version 2)
Quarter: 2014Q2

REPORT INFORMATION
  Report Type: Spontaneous
  Country: US (occurrence: US)
  Receive Date: 20140307
  Receipt Date: 20140402
  Transmission Date: 20141212
  Serious: No
  Sender: FDA-Public Use
  Company Number: US-AMGEN-USASP2014010814

PATIENT
  Age: 31 Year
  Sex: Male
  Weight: 86.17 kg

DRUGS (4)
  1. ENBREL [Suspect]
     Indication: PSORIASIS
     Dosage: 50 MG, QWK
     Route: 058
     Dates: start: 20121228, end: 20131224
  2. ENBREL [Suspect]
     Route: 058
  3. ENBREL [Suspect]
     Route: 058
  4. ENBREL [Suspect]
     Route: 058

REACTIONS (3)
  - Liver function test abnormal [Not Recovered/Not Resolved]
  - Alanine aminotransferase increased [Not Recovered/Not Resolved]
  - Aspartate aminotransferase increased [Not Recovered/Not Resolved]
